FAERS Safety Report 11238227 (Version 6)
Quarter: 2015Q4

REPORT INFORMATION
  Report Type: Spontaneous
  Country: JP (occurrence: JP)
  Receive Date: 20150703
  Receipt Date: 20151030
  Transmission Date: 20160304
  Serious: Yes (Death, Other)
  Sender: FDA-Public Use
  Company Number: JP-ASTRAZENECA-2015SE63868

PATIENT
  Age: 20325 Day
  Sex: Female
  Weight: 58 kg

DRUGS (24)
  1. DRENISON [Concomitant]
     Active Substance: FLURANDRENOLIDE
     Indication: ECZEMA
     Route: 062
     Dates: start: 20100108
  2. JANUVIA [Concomitant]
     Active Substance: SITAGLIPTIN PHOSPHATE
     Indication: TYPE 2 DIABETES MELLITUS
     Route: 048
     Dates: start: 20090930, end: 20120409
  3. METGLUCO [Concomitant]
     Active Substance: METFORMIN HYDROCHLORIDE
     Indication: TYPE 2 DIABETES MELLITUS
     Route: 048
     Dates: start: 20140520, end: 20150616
  4. GLIMEPIRIDE. [Concomitant]
     Active Substance: GLIMEPIRIDE
     Dosage: 2 MG, NUMBER OF SEPARATE DOSAGES UNKNOWN
     Route: 048
     Dates: start: 20130210
  5. BIOFERMIN [Concomitant]
     Active Substance: BACILLUS SUBTILIS\LACTOBACILLUS ACIDOPHILUS\STREPTOCOCCUS FAECAIS
     Route: 048
     Dates: start: 20120303
  6. MUCOSTA [Concomitant]
     Active Substance: REBAMIPIDE
     Indication: ECZEMA IMPETIGINOUS
     Route: 048
     Dates: start: 20100108, end: 20120302
  7. TRANSAMIN [Concomitant]
     Active Substance: TRANEXAMIC ACID
     Indication: PHARYNGITIS
     Route: 048
     Dates: start: 20150512, end: 20150515
  8. METGLUCO [Concomitant]
     Active Substance: METFORMIN HYDROCHLORIDE
     Indication: TYPE 2 DIABETES MELLITUS
     Route: 048
     Dates: start: 20120620, end: 20140519
  9. VIBRAMYCIN [Concomitant]
     Active Substance: DOXYCYCLINE
     Indication: ECZEMA
     Route: 048
  10. CEFDINIR. [Concomitant]
     Active Substance: CEFDINIR
     Indication: CYSTITIS
     Dosage: DOSE UNKNOWN
     Route: 065
     Dates: start: 20120814
  11. MYALONE [Concomitant]
     Indication: ECZEMA
     Route: 062
     Dates: start: 20100108
  12. GLIMEPIRIDE. [Concomitant]
     Active Substance: GLIMEPIRIDE
     Route: 048
     Dates: start: 20110411, end: 20130209
  13. ACTOS [Concomitant]
     Active Substance: PIOGLITAZONE HYDROCHLORIDE
     Indication: TYPE 2 DIABETES MELLITUS
     Route: 048
     Dates: start: 20091019
  14. ADANT [Concomitant]
     Indication: PERIARTHRITIS
     Route: 014
     Dates: start: 20110928
  15. EPEL [Concomitant]
     Route: 048
     Dates: start: 20120303
  16. KINEX [Suspect]
     Active Substance: EPALRESTAT
     Indication: TYPE 2 DIABETES MELLITUS
     Route: 048
     Dates: start: 20090722, end: 20150616
  17. PREDNISOLONE. [Concomitant]
     Active Substance: PREDNISOLONE
     Indication: ALOPECIA AREATA
     Route: 048
     Dates: start: 20150109, end: 20150501
  18. DERMOVATE [Concomitant]
     Active Substance: CLOBETASOL
     Indication: ALOPECIA AREATA
     Dosage: TWO TIMES A DAY
     Route: 062
     Dates: start: 20150109, end: 20150501
  19. VOGLIBOSE [Concomitant]
     Active Substance: VOGLIBOSE
     Indication: TYPE 2 DIABETES MELLITUS
     Route: 048
     Dates: start: 20091019
  20. MUCOSTA [Concomitant]
     Active Substance: REBAMIPIDE
     Indication: ECZEMA
     Route: 048
     Dates: start: 20120303
  21. FORXIGA [Suspect]
     Active Substance: DAPAGLIFLOZIN
     Indication: TYPE 2 DIABETES MELLITUS
     Route: 048
     Dates: start: 20150320, end: 20150616
  22. JANUVIA [Concomitant]
     Active Substance: SITAGLIPTIN PHOSPHATE
     Indication: TYPE 2 DIABETES MELLITUS
     Route: 048
     Dates: start: 20120410, end: 20150616
  23. MUCOSTA [Concomitant]
     Active Substance: REBAMIPIDE
     Indication: ECZEMA
     Route: 048
     Dates: start: 20100108, end: 20120302
  24. MUCOSTA [Concomitant]
     Active Substance: REBAMIPIDE
     Indication: ECZEMA IMPETIGINOUS
     Route: 048
     Dates: start: 20120303

REACTIONS (6)
  - Hunger [Not Recovered/Not Resolved]
  - Respiratory distress [Not Recovered/Not Resolved]
  - Bronchitis [Recovered/Resolved]
  - Myocardial infarction [Fatal]
  - Nausea [Not Recovered/Not Resolved]
  - Urinary incontinence [Not Recovered/Not Resolved]

NARRATIVE: CASE EVENT DATE: 20150408
